FAERS Safety Report 4491221-0 (Version None)
Quarter: 2004Q3

REPORT INFORMATION
  Report Type: 
  Country: None (occurrence: None)
  Receive Date: 20040927
  Receipt Date: 20040804
  Transmission Date: 20050211
  Serious: No
  Sender: FDA-Public Use
  Company Number: USA040874656

PATIENT
  Age: 14 Year
  Sex: Female
  Weight: 45 kg

DRUGS (1)
  1. STRATTERA [Suspect]
     Dosage: 80 MG/1 DAY
     Dates: start: 20030101

REACTIONS (3)
  - ABDOMINAL PAIN UPPER [None]
  - DRUG INEFFECTIVE [None]
  - PRESCRIBED OVERDOSE [None]
